FAERS Safety Report 9256740 (Version 3)
Quarter: 2013Q3

REPORT INFORMATION
  Report Type: Spontaneous
  Country: US (occurrence: US)
  Receive Date: 20130426
  Receipt Date: 20130927
  Transmission Date: 20140515
  Serious: Yes (Hospitalization, Other)
  Sender: FDA-Public Use
  Company Number: US-ASTRAZENECA-2013SE27599

PATIENT
  Age: 48 Year
  Sex: Female
  Weight: 62.6 kg

DRUGS (22)
  1. NEXIUM [Suspect]
     Indication: GASTROOESOPHAGEAL REFLUX DISEASE
     Route: 048
     Dates: start: 1998, end: 2004
  2. NEXIUM [Suspect]
     Indication: GASTROOESOPHAGEAL REFLUX DISEASE
     Route: 048
  3. NEXIUM [Suspect]
     Indication: GASTROOESOPHAGEAL REFLUX DISEASE
     Route: 048
     Dates: start: 20030331
  4. PRILOSEC [Suspect]
     Route: 048
     Dates: start: 1998
  5. CRESTOR [Suspect]
     Route: 048
  6. PROTONIX [Concomitant]
     Indication: GASTROOESOPHAGEAL REFLUX DISEASE
     Dates: start: 1998
  7. TAGAMET [Concomitant]
     Dates: start: 1998
  8. PREVACID [Concomitant]
     Dates: start: 1998
  9. PEPCID [Concomitant]
     Dates: start: 1998
  10. ZEGERID [Concomitant]
     Dates: start: 1998
  11. ACIPHEX [Concomitant]
  12. SYNTHROID [Concomitant]
     Indication: HORMONE REPLACEMENT THERAPY
     Dates: start: 20080725
  13. METOPROLOL TARTRATE [Concomitant]
     Indication: CARDIAC DISORDER
  14. ZANTAC [Concomitant]
     Indication: GASTROOESOPHAGEAL REFLUX DISEASE
     Dates: start: 20080725
  15. ZANTAC [Concomitant]
     Indication: GASTROOESOPHAGEAL REFLUX DISEASE
     Dosage: TWO TIMES A DAY 150 MG A.M. AND 300 MG AT BEDTIME
  16. CLONAZEPAM [Concomitant]
     Indication: VOCAL CORD PARALYSIS
     Dosage: 0.5 MG AS DIRECTED BID PRN
     Dates: start: 20080725
  17. CITRACAL [Concomitant]
     Dosage: A DAY
  18. FOSAMAX [Concomitant]
  19. VITAMIN [Concomitant]
  20. ATENOLOL [Concomitant]
  21. CARAFATE [Concomitant]
     Dates: start: 20080725
  22. PRAVASTATIN [Concomitant]
     Dates: start: 20080725

REACTIONS (19)
  - Neoplasm malignant [Unknown]
  - Gallbladder disorder [Unknown]
  - Cerebrovascular accident [Unknown]
  - Osteoporosis [Unknown]
  - Bone disorder [Unknown]
  - Multiple fractures [Unknown]
  - Bone density decreased [Unknown]
  - Fall [Unknown]
  - Hepatic enzyme increased [Unknown]
  - Vitamin D deficiency [Unknown]
  - Fracture [Unknown]
  - Bone pain [Unknown]
  - Arthritis [Unknown]
  - Cataract [Unknown]
  - Chronic obstructive pulmonary disease [Unknown]
  - Rheumatoid arthritis [Unknown]
  - Hyperparathyroidism [Unknown]
  - Hypothyroidism [Unknown]
  - Osteopenia [Unknown]
